FAERS Safety Report 6436843-2 (Version None)
Quarter: 2009Q4

REPORT INFORMATION
  Report Type: 
  Country: None (occurrence: None)
  Receive Date: 20091111
  Receipt Date: 20090914
  Transmission Date: 20100525
  Serious: No
  Sender: FDA-Public Use
  Company Number: US-ALLERGAN-0912803US

PATIENT
  Age: 90 Year
  Sex: Female

DRUGS (4)
  1. SANCTURA XR [Suspect]
     Indication: HYPERTONIC BLADDER
     Dosage: 60 MG, QAM
     Route: 048
     Dates: start: 20090701
  2. CYMBALTA [Suspect]
     Indication: DRUG USE FOR UNKNOWN INDICATION
     Dosage: UNK
     Dates: start: 20090701
  3. ATIVAN [Concomitant]
     Dosage: 3.5 MG, UNK
  4. TRAZODONE HCL [Concomitant]
     Indication: SLEEP DISORDER

REACTIONS (2)
  - ABDOMINAL DISCOMFORT [None]
  - ABDOMINAL PAIN UPPER [None]
